FAERS Safety Report 6235046-4 (Version None)
Quarter: 2009Q2

REPORT INFORMATION
  Report Type: 
  Country: None (occurrence: None)
  Receive Date: 20090615
  Receipt Date: 20090603
  Transmission Date: 20091009
  Serious: Yes (Hospitalization)
  Sender: FDA-Public Use
  Company Number: B0542021B

PATIENT
  Age: 66 Year
  Sex: Female
  Weight: 77.3383 kg

DRUGS (5)
  1. LAPATINIB (FORMULATION UNKNOWN) (LAPATINIB) [Suspect]
     Indication: BREAST CANCER METASTATIC
     Dosage: 1250 MG
     Dates: start: 20080904
  2. EPIRUBICIN [Suspect]
     Indication: BREAST CANCER METASTATIC
     Dates: start: 20080904
  3. BISOPROLOL FUMARATE [Concomitant]
  4. GLICLAZIDE [Concomitant]
  5. RAMIPRIL [Concomitant]

REACTIONS (8)
  - BREAST DISCHARGE [None]
  - GENERAL PHYSICAL HEALTH DETERIORATION [None]
  - HAEMOGLOBIN DECREASED [None]
  - MALAISE [None]
  - METASTASES TO CENTRAL NERVOUS SYSTEM [None]
  - METASTASES TO SKIN [None]
  - NAUSEA [None]
  - NEUTROPENIA [None]
